FAERS Safety Report 8092106 (Version 3)
Quarter: 2013Q1

REPORT INFORMATION
  Report Type: Spontaneous
  Country: AU (occurrence: AU)
  Receive Date: 20110816
  Receipt Date: 20130118
  Transmission Date: 20140127
  Serious: Yes (Hospitalization, Other)
  Sender: FDA-Public Use
  Company Number: PHHY2011AU71197

PATIENT
  Age: 71 Year
  Sex: Male

DRUGS (2)
  1. GLIVEC [Suspect]
     Indication: CHRONIC MYELOID LEUKAEMIA
     Dosage: 400 MG, DAILY
     Route: 048
     Dates: start: 20010105
  2. PANTOPRAZOLE [Concomitant]
     Dosage: 400 MG, DAILY

REACTIONS (6)
  - Urinary retention [Unknown]
  - Prostatic specific antigen increased [Unknown]
  - Hernia [Recovered/Resolved]
  - Intestinal polyp [Recovered/Resolved]
  - Blood count abnormal [Unknown]
  - Gene mutation identification test positive [Recovered/Resolved]
